FAERS Safety Report 4952600-8 (Version None)
Quarter: 2006Q1

REPORT INFORMATION
  Report Type: 
  Country: None (occurrence: None)
  Receive Date: 20060317
  Receipt Date: 20060307
  Transmission Date: 20060701
  Serious: Yes (Hospitalization)
  Sender: FDA-Public Use
  Company Number: A-US2006-11678

PATIENT
  Age: 39 Year
  Sex: Female

DRUGS (9)
  1. TRACLEER [Suspect]
     Indication: PULMONARY HYPERTENSION
     Dosage: SEE IMAGE, ORAL
     Route: 048
     Dates: start: 20040915, end: 20041021
  2. TRACLEER [Suspect]
     Indication: PULMONARY HYPERTENSION
     Dosage: SEE IMAGE, ORAL
     Route: 048
     Dates: start: 20041022, end: 20050916
  3. LASIX [Concomitant]
  4. ALDACTONE [Concomitant]
  5. PLAQUENIL [Concomitant]
  6. CELLCEPT [Concomitant]
  7. SALMETEROL (SALMETEROL) [Concomitant]
  8. FLUTICASONE PROPIONATE [Concomitant]
  9. DIGOXIN [Concomitant]

REACTIONS (12)
  - ASCITES [None]
  - AUTOIMMUNE HEPATITIS [None]
  - COMPLEMENT FACTOR C3 DECREASED [None]
  - ESCHERICHIA URINARY TRACT INFECTION [None]
  - FLUID INTAKE REDUCED [None]
  - FLUID OVERLOAD [None]
  - GALLBLADDER OEDEMA [None]
  - HEPATIC CONGESTION [None]
  - HEPATIC NECROSIS [None]
  - HYPOTENSION [None]
  - INTERNATIONAL NORMALISED RATIO INCREASED [None]
  - SMOOTH MUSCLE ANTIBODY POSITIVE [None]
